FAERS Safety Report 8208165-0 (Version None)
Quarter: 2012Q1

REPORT INFORMATION
  Report Type: 
  Country: None (occurrence: None)
  Receive Date: 20120314
  Receipt Date: 20120307
  Transmission Date: 20120608
  Serious: Yes (Hospitalization, Other)
  Sender: FDA-Public Use
  Company Number: PHHY2012CA020479

PATIENT
  Sex: Male

DRUGS (19)
  1. BISOPROLOL FUMARATE [Concomitant]
     Dosage: 5 MG, DAILY
     Route: 048
  2. POLYETHYLENE GLYCOL [Concomitant]
     Dosage: 17 G, DAILY, PRN
     Route: 048
  3. TAMSULOSIN HCL [Concomitant]
     Dosage: 0.8 MG, DAILY
     Route: 048
  4. SALICYLATES [Concomitant]
  5. BETAMETHASONE [Concomitant]
     Dosage: UNK
  6. FERROUS GLUCONATE [Concomitant]
     Dosage: 300 MG, DAILY
     Route: 048
  7. CALCIUM CARBONATE [Concomitant]
     Dosage: 500 MG, BID
     Route: 048
  8. VITAMIN B-12 [Concomitant]
     Dosage: 1000 UG, DAILY
     Route: 048
  9. LACTULOSE [Concomitant]
     Dosage: 15 TO 30 ML BID, PRN
     Route: 048
  10. AMLODIPINE [Concomitant]
     Dosage: 5 MG, DAILY
     Route: 048
  11. PANTOPRAZOLE [Concomitant]
     Dosage: 40 MG, DAILY
     Route: 048
  12. VITAMIN D [Concomitant]
     Dosage: 2000 IU, DAILY
     Route: 048
  13. CODEINE SULFATE [Concomitant]
     Dosage: 50 MG, TID, PRN
     Route: 048
  14. ACETAMINOPHEN [Concomitant]
     Dosage: 650 MG, PRN
     Route: 048
  15. CLOZAPINE [Suspect]
     Dosage: 200 MG, QD
     Route: 048
  16. FINASTERIDE [Concomitant]
     Dosage: 5 MG, DAILY
     Route: 048
  17. ALENDRONATE SODIUM [Concomitant]
     Dosage: 70 MG, QW
     Route: 048
  18. RAMIPRIL [Concomitant]
     Dosage: 10 MG, BID
     Route: 048
  19. HYDROCORTISONE [Concomitant]
     Dosage: DAILY

REACTIONS (14)
  - COMA SCALE ABNORMAL [None]
  - DEAFNESS [None]
  - DEPRESSED LEVEL OF CONSCIOUSNESS [None]
  - INCREASED UPPER AIRWAY SECRETION [None]
  - SOMNOLENCE [None]
  - DELIRIUM [None]
  - RESTLESSNESS [None]
  - URINARY TRACT OBSTRUCTION [None]
  - UNRESPONSIVE TO STIMULI [None]
  - ABDOMINAL TENDERNESS [None]
  - SEDATION [None]
  - COMMUNICATION DISORDER [None]
  - URINARY TRACT INFECTION BACTERIAL [None]
  - MUSCLE ATROPHY [None]
